FAERS Safety Report 14951062 (Version 1)
Quarter: 2018Q2

REPORT INFORMATION
  Report Type: Spontaneous
  Country: DE (occurrence: DE)
  Receive Date: 20180530
  Receipt Date: 20180530
  Transmission Date: 20180711
  Serious: Yes (Other)
  Sender: FDA-Public Use
  Company Number: DE-TEVA-2018-DE-896560

PATIENT
  Age: 18 Year
  Sex: Male

DRUGS (2)
  1. DESMOPRESSIN TEVA 0,2 MG TABLETTEN [Suspect]
     Active Substance: DESMOPRESSIN ACETATE
     Indication: ENURESIS
     Dosage: TAKEN FOR MORE THAN 3 YEARS
     Route: 048
  2. DESMOPRESSIN TEVA 0,2 MG TABLETTEN [Suspect]
     Active Substance: DESMOPRESSIN ACETATE
     Dosage: HALF A TABLET
     Route: 048
     Dates: start: 20180519

REACTIONS (4)
  - Expired product administered [Unknown]
  - Dizziness [Unknown]
  - Urine flow decreased [Not Recovered/Not Resolved]
  - Urinary retention [Recovered/Resolved]

NARRATIVE: CASE EVENT DATE: 20180520
